FAERS Safety Report 5190516-5 (Version None)
Quarter: 2006Q4

REPORT INFORMATION
  Report Type: 
  Country: None (occurrence: None)
  Receive Date: 20061222
  Receipt Date: 20061218
  Transmission Date: 20070319
  Serious: Yes (Other)
  Sender: FDA-Public Use
  Company Number: EG-GLAXOSMITHKLINE-B0451521A

PATIENT
  Age: 41 Year
  Sex: Male

DRUGS (1)
  1. ZEFFIX [Suspect]
     Indication: HEPATITIS B
     Dosage: 1TAB PER DAY
     Route: 065
     Dates: start: 20050601

REACTIONS (2)
  - ALANINE AMINOTRANSFERASE INCREASED [None]
  - POLYMERASE CHAIN REACTION [None]
